FAERS Safety Report 22247914 (Version 2)
Quarter: 2023Q2

REPORT INFORMATION
  Report Type: Spontaneous
  Country: US (occurrence: US)
  Receive Date: 20230425
  Receipt Date: 20230504
  Transmission Date: 20230722
  Serious: Yes (Life-Threatening, Hospitalization, Other)
  Sender: FDA-Public Use
  Company Number: IR-ALKEM LABORATORIES LIMITED-IR-ALKEM-2023-04358

PATIENT
  Age: 61 Year
  Sex: Male

DRUGS (3)
  1. DALFAMPRIDINE [Suspect]
     Active Substance: DALFAMPRIDINE
     Indication: Relapsing-remitting multiple sclerosis
     Dosage: UNK, (THERAPEUTIC DOSE)
     Route: 065
  2. DALFAMPRIDINE [Suspect]
     Active Substance: DALFAMPRIDINE
     Dosage: UNK (RESUMED DOSE)
     Route: 065
  3. DIMETHYL FUMARATE [Concomitant]
     Active Substance: DIMETHYL FUMARATE
     Indication: Multiple sclerosis
     Dosage: UNK
     Route: 065

REACTIONS (1)
  - Status epilepticus [Recovered/Resolved]
